FAERS Safety Report 12091399 (Version 1)
Quarter: 2016Q1

REPORT INFORMATION
  Report Type: Spontaneous
  Country: CH (occurrence: FR)
  Receive Date: 20160218
  Receipt Date: 20160218
  Transmission Date: 20160526
  Serious: Yes (Other)
  Sender: FDA-Public Use
  Company Number: CH-LPDUSPRD-20160129

PATIENT
  Age: 83 Year
  Sex: Female

DRUGS (1)
  1. VENOFER [Suspect]
     Active Substance: IRON SUCROSE
     Dosage: 300 MG, 1 IN 1 TOTAL
     Route: 058
     Dates: start: 20160121, end: 20160121

REACTIONS (4)
  - Skin discolouration [Unknown]
  - Incorrect route of drug administration [Unknown]
  - Product preparation error [Unknown]
  - Localised oedema [Unknown]

NARRATIVE: CASE EVENT DATE: 20160121
